FAERS Safety Report 4506712-3 (Version None)
Quarter: 2004Q4

REPORT INFORMATION
  Report Type: 
  Country: None (occurrence: None)
  Receive Date: 20041122
  Receipt Date: 20041105
  Transmission Date: 20050328
  Serious: Yes (Life-Threatening, Hospitalization)
  Sender: FDA-Public Use
  Company Number: US-MERCK-0411USA00983

PATIENT
  Age: 73 Year
  Sex: Female

DRUGS (11)
  1. VIOXX [Suspect]
     Indication: OSTEOARTHRITIS
     Route: 048
     Dates: start: 20011013, end: 20020101
  2. SYNTHROID [Concomitant]
     Route: 065
  3. DARVOCET-N 100 [Concomitant]
     Route: 065
  4. AMBIEN [Concomitant]
     Route: 065
  5. ASPIRIN [Concomitant]
     Route: 065
  6. ATIVAN [Concomitant]
     Route: 065
  7. NEXIUM [Concomitant]
     Route: 065
  8. ZOCOR [Concomitant]
     Route: 048
  9. DONNATAL [Concomitant]
     Route: 065
  10. GINKGO BILOBA EXTRACT [Concomitant]
     Route: 065
  11. CHONDROITIN SULFATE SODIUM AND GLUCOSAMINE HYDROCHLORIDE [Concomitant]
     Route: 065

REACTIONS (4)
  - ABDOMINAL PAIN UPPER [None]
  - CORONARY ARTERY OCCLUSION [None]
  - LETHARGY [None]
  - MYOCARDIAL INFARCTION [None]
